FAERS Safety Report 7166164-4 (Version None)
Quarter: 2010Q4

REPORT INFORMATION
  Report Type: 
  Country: None (occurrence: None)
  Receive Date: 20101216
  Receipt Date: 20101208
  Transmission Date: 20110411
  Serious: Yes (Other)
  Sender: FDA-Public Use
  Company Number: US-RANBAXY-2010US-40160

PATIENT
  Age: 5 Month
  Sex: Male

DRUGS (3)
  1. GANCICLOVIR [Suspect]
     Indication: CYTOMEGALOVIRUS VIRAEMIA
     Dosage: UNK, UNK
     Route: 065
  2. CYTOMEGALOVIRUS IMMUNE GLOBULIN [Suspect]
     Indication: CYTOMEGALOVIRUS VIRAEMIA
     Route: 065
  3. IMMUNE GLOBULIN NOS [Suspect]
     Indication: CYTOMEGALOVIRUS VIRAEMIA
     Route: 065

REACTIONS (1)
  - DRUG INEFFECTIVE [None]
